FAERS Safety Report 5245259-6 (Version None)
Quarter: 2007Q1

REPORT INFORMATION
  Report Type: 
  Country: None (occurrence: None)
  Receive Date: 20070223
  Receipt Date: 20070213
  Transmission Date: 20070707
  Serious: Yes (Hospitalization)
  Sender: FDA-Public Use
  Company Number: NO-MERCK-0702NOR00006

PATIENT
  Age: 57 Year
  Sex: Female

DRUGS (5)
  1. ALDOMET [Suspect]
     Indication: HYPERTENSION
     Route: 048
     Dates: start: 20060401, end: 20061108
  2. METFORMIN [Concomitant]
     Indication: DIABETES MELLITUS
     Route: 065
  3. HYZAAR [Concomitant]
     Indication: HYPERTENSION
     Route: 048
  4. ALBYL-E [Concomitant]
     Indication: ANTICOAGULANT THERAPY
     Route: 048
  5. IMOVANE [Concomitant]
     Indication: INSOMNIA
     Route: 048

REACTIONS (2)
  - HAEMOLYTIC ANAEMIA [None]
  - THROMBOCYTOPENIC PURPURA [None]
